FAERS Safety Report 10975181 (Version 2)
Quarter: 2015Q2

REPORT INFORMATION
  Report Type: Report from Study
  Country: US (occurrence: US)
  Receive Date: 20150401
  Receipt Date: 20150611
  Transmission Date: 20150821
  Serious: Yes (Hospitalization)
  Sender: FDA-Public Use
  Company Number: US-BAYER-2014-184068

PATIENT
  Age: 69 Year
  Sex: Female

DRUGS (3)
  1. STIVARGA [Suspect]
     Active Substance: REGORAFENIB
     Indication: COLON CANCER
     Dosage: DAILY DOSE OF 120 MG
     Route: 048
  2. STIVARGA [Suspect]
     Active Substance: REGORAFENIB
     Indication: COLON CANCER
     Dosage: 80 MG, DAILY
  3. STIVARGA [Suspect]
     Active Substance: REGORAFENIB
     Indication: COLON CANCER
     Dosage: 160 MG, DAILY
     Dates: start: 20141202

REACTIONS (14)
  - Fatigue [Not Recovered/Not Resolved]
  - Atrial fibrillation [None]
  - Palpitations [None]
  - Nausea [Not Recovered/Not Resolved]
  - Muscle spasms [None]
  - Hot flush [None]
  - Nausea [None]
  - Neuropathy peripheral [None]
  - Diarrhoea [None]
  - Palmar-plantar erythrodysaesthesia syndrome [None]
  - Fatigue [None]
  - Atrial fibrillation [None]
  - Muscle spasms [Not Recovered/Not Resolved]
  - Vertigo [None]

NARRATIVE: CASE EVENT DATE: 20141208
